FAERS Safety Report 20090201 (Version 8)
Quarter: 2022Q1

REPORT INFORMATION
  Report Type: Report from Study
  Country: US (occurrence: US)
  Receive Date: 20211119
  Receipt Date: 20220302
  Transmission Date: 20220423
  Serious: No
  Sender: FDA-Public Use
  Company Number: US-NOVARTISTESTPH-NVSC2021US265266

PATIENT
  Age: 57 Year
  Sex: Male

DRUGS (4)
  1. KESIMPTA [Suspect]
     Active Substance: OFATUMUMAB
     Indication: Multiple sclerosis
     Dosage: 20 MG, QW
     Route: 058
     Dates: start: 20211109
  2. KESIMPTA [Suspect]
     Active Substance: OFATUMUMAB
     Dosage: 1.2 ML, OTHER (3 PENS)
     Route: 050
     Dates: start: 20211122
  3. KESIMPTA [Suspect]
     Active Substance: OFATUMUMAB
     Dosage: UNK
     Route: 065
     Dates: start: 20211208
  4. KESIMPTA [Suspect]
     Active Substance: OFATUMUMAB
     Dosage: 20 MG
     Route: 058
     Dates: start: 20211109

REACTIONS (19)
  - Influenza like illness [Recovering/Resolving]
  - Feeling hot [Recovering/Resolving]
  - Pain [Recovering/Resolving]
  - Rhinorrhoea [Recovering/Resolving]
  - Chills [Recovering/Resolving]
  - Pyrexia [Recovering/Resolving]
  - Hyperhidrosis [Recovering/Resolving]
  - Feeling abnormal [Not Recovered/Not Resolved]
  - Sensitive skin [Recovered/Resolved]
  - Musculoskeletal stiffness [Unknown]
  - Nail disorder [Unknown]
  - Abdominal discomfort [Unknown]
  - Decreased appetite [Unknown]
  - Tremor [Unknown]
  - Rash [Not Recovered/Not Resolved]
  - Penile rash [Recovering/Resolving]
  - Acne [Not Recovered/Not Resolved]
  - Bruxism [Unknown]
  - Erythema [Not Recovered/Not Resolved]

NARRATIVE: CASE EVENT DATE: 20211109
